FAERS Safety Report 6891551-9 (Version None)
Quarter: 2010Q3

REPORT INFORMATION
  Report Type: 
  Country: None (occurrence: None)
  Receive Date: 20100731
  Receipt Date: 20070827
  Transmission Date: 20110219
  Serious: No
  Sender: FDA-Public Use
  Company Number: US-PFIZER INC-2007072395

PATIENT
  Sex: Male
  Weight: 86.18 kg

DRUGS (11)
  1. NEURONTIN [Suspect]
     Indication: ALLERGIC GRANULOMATOUS ANGIITIS
     Dosage: QD EVERY DAY
     Dates: start: 20050801
  2. PREDNISONE [Suspect]
     Indication: ALLERGIC GRANULOMATOUS ANGIITIS
     Dates: start: 20050101
  3. COZAAR [Concomitant]
  4. ENALAPRIL [Concomitant]
  5. NORVASC [Concomitant]
  6. COREG [Concomitant]
  7. ALBUTEROL [Concomitant]
  8. SPIRIVA [Concomitant]
  9. ADVAIR DISKUS 100/50 [Concomitant]
  10. PREVACID [Concomitant]
  11. XOLAIR [Concomitant]
     Route: 051

REACTIONS (3)
  - DRUG INEFFECTIVE [None]
  - INCREASED APPETITE [None]
  - WEIGHT INCREASED [None]
